FAERS Safety Report 15109940 (Version 2)
Quarter: 2018Q3

REPORT INFORMATION
  Report Type: Report from Study
  Country: US (occurrence: US)
  Receive Date: 20180705
  Receipt Date: 20180712
  Transmission Date: 20181010
  Serious: Yes (Other)
  Sender: FDA-Public Use
  Company Number: US-GILEAD-2018-0348172

PATIENT
  Age: 58 Year
  Sex: Female
  Weight: 73.92 kg

DRUGS (1)
  1. AMBRISENTAN [Suspect]
     Active Substance: AMBRISENTAN
     Indication: PRODUCT USED FOR UNKNOWN INDICATION
     Dosage: 10 MG, UNK
     Route: 065
     Dates: start: 20170327

REACTIONS (3)
  - Arthritis [Recovered/Resolved]
  - Meniscus injury [Recovered/Resolved]
  - Back disorder [Unknown]
